FAERS Safety Report 5647964-6 (Version None)
Quarter: 2008Q1

REPORT INFORMATION
  Report Type: 
  Country: None (occurrence: None)
  Receive Date: 20080229
  Receipt Date: 20080219
  Transmission Date: 20080703
  Serious: Yes (Death)
  Sender: FDA-Public Use
  Company Number: 2008-01469

PATIENT
  Age: 45 Year
  Sex: Male

DRUGS (4)
  1. DIAZEPAM [Suspect]
     Indication: ANXIETY
     Dosage: 1 TABLET, TID, ORAL
     Route: 048
     Dates: start: 20080124, end: 20080214
  2. NORCO 10/325    (HYDROCODONE BITARTRATE 10 MG, ACETAMINOPHEN 325 MG) [Suspect]
     Indication: PAIN
     Dosage: 1 TABLET, TID, ORAL
     Route: 048
     Dates: start: 20080208, end: 20080214
  3. OPANA ER      (OXYMORPHONE) [Suspect]
     Dosage: 20 MG, DAILY, ORAL
     Route: 048
     Dates: start: 20080205, end: 20080214
  4. AMITRIPTYLINE HCL [Suspect]
     Indication: DEPRESSION
     Dosage: 2 TABLETS, QHS, ORAL
     Route: 048
     Dates: start: 20080128, end: 20080214

REACTIONS (1)
  - MULTIPLE DRUG OVERDOSE INTENTIONAL [None]
